FAERS Safety Report 6701559-1 (Version None)
Quarter: 2010Q2

REPORT INFORMATION
  Report Type: 
  Country: None (occurrence: None)
  Receive Date: 20100427
  Receipt Date: 20100414
  Transmission Date: 20101027
  Serious: Yes (Hospitalization)
  Sender: FDA-Public Use
  Company Number: 201004011

PATIENT
  Age: 62 Year
  Sex: Male
  Weight: 90.2658 kg

DRUGS (16)
  1. TESTIM [Suspect]
     Indication: DEPRESSION
     Dosage: 50 MG DAILY, TRANSDERMAL, 50 MG DAILY, TRANSDERMAL
     Route: 062
     Dates: start: 20080101, end: 20100119
  2. TESTIM [Suspect]
     Indication: LIBIDO DECREASED
     Dosage: 50 MG DAILY, TRANSDERMAL, 50 MG DAILY, TRANSDERMAL
     Route: 062
     Dates: start: 20080101, end: 20100119
  3. TESTIM [Suspect]
     Indication: DEPRESSION
     Dosage: 50 MG DAILY, TRANSDERMAL, 50 MG DAILY, TRANSDERMAL
     Route: 062
     Dates: start: 20100207
  4. TESTIM [Suspect]
     Indication: LIBIDO DECREASED
     Dosage: 50 MG DAILY, TRANSDERMAL, 50 MG DAILY, TRANSDERMAL
     Route: 062
     Dates: start: 20100207
  5. LYRICA [Concomitant]
  6. BLUE SPRING OINTMENT [Concomitant]
  7. HUMALOG INSULIN (INSULIN) (INSULIN) [Concomitant]
  8. METFORMIN HCL [Concomitant]
  9. LISINOPRIL [Concomitant]
  10. ATENOLOL [Concomitant]
  11. HYDROCHLOROTHIAZIDE [Concomitant]
  12. OMEPRAZOLE [Concomitant]
  13. SIMVASTATIN [Concomitant]
  14. TERAZOSIN (TERAZOSIN) (TERAZOSIN) [Concomitant]
  15. ASPIRIN [Concomitant]
  16. VITAMINS (VITAMINS NOS (VITAMINS NOS) [Concomitant]

REACTIONS (8)
  - AMNESIA [None]
  - CORONARY ARTERY OCCLUSION [None]
  - DYSPNOEA [None]
  - HAEMATOCHEZIA [None]
  - INFECTION [None]
  - POST PROCEDURAL COMPLICATION [None]
  - PROSTATIC SPECIFIC ANTIGEN INCREASED [None]
  - WEIGHT DECREASED [None]
